FAERS Safety Report 7482218-7 (Version None)
Quarter: 2011Q2

REPORT INFORMATION
  Report Type: 
  Country: None (occurrence: None)
  Receive Date: 20110516
  Receipt Date: 20110509
  Transmission Date: 20111010
  Serious: No
  Sender: FDA-Public Use
  Company Number: US-PFIZER INC-2011099800

PATIENT
  Sex: Female
  Weight: 56.689 kg

DRUGS (3)
  1. XANAX [Concomitant]
     Dosage: UNK
  2. PROZAC [Concomitant]
     Dosage: UNK
  3. FLAGYL [Suspect]
     Indication: BACTERIAL INFECTION
     Dosage: UNK
     Route: 048

REACTIONS (2)
  - NAUSEA [None]
  - VOMITING [None]
